FAERS Safety Report 4339685-7 (Version None)
Quarter: 2004Q1

REPORT INFORMATION
  Report Type: 
  Country: None (occurrence: None)
  Receive Date: 20040329
  Receipt Date: 20040206
  Transmission Date: 20041129
  Serious: No
  Sender: FDA-Public Use
  Company Number: 04P-163-0249636-00

PATIENT
  Age: 83 Year
  Sex: Female

DRUGS (12)
  1. HUMIRA [Suspect]
     Indication: RHEUMATOID ARTHRITIS
     Dosage: 40 MG, 1 IN 2 WK, SUBCUTANEOUS
     Route: 058
     Dates: start: 20030101
  2. LEVOTHYROXINE SODIUM [Concomitant]
  3. METHOTREXATE [Concomitant]
  4. HYZAAR [Concomitant]
  5. ESOMEPRAZOLE [Concomitant]
  6. FELODIPINE [Concomitant]
  7. HYDROCODONE [Concomitant]
  8. DICYCLOVERINE [Concomitant]
  9. CYPROHEPTADINE HCL [Concomitant]
  10. LOSARTAN POTASSIUM [Concomitant]
  11. FOLIC ACID [Concomitant]
  12. MELOXICAM [Concomitant]

REACTIONS (1)
  - INJECTION SITE PAIN [None]
